FAERS Safety Report 8371156-3 (Version None)
Quarter: 2012Q2

REPORT INFORMATION
  Report Type: 
  Country: None (occurrence: None)
  Receive Date: 20120518
  Receipt Date: 20120504
  Transmission Date: 20120825
  Serious: Yes (Death, Hospitalization, Congenital Anomaly, Other)
  Sender: FDA-Public Use
  Company Number: DE-WATSON-2012-07767

PATIENT
  Sex: Female
  Weight: 2.965 kg

DRUGS (9)
  1. APSOMOL                            /00139501/ [Concomitant]
     Indication: BRONCHITIS
     Dosage: UNK
     Route: 064
     Dates: start: 20101220, end: 20101225
  2. EMSER                              /01022701/ [Concomitant]
     Indication: SELF-MEDICATION
     Dosage: UNK
     Route: 064
     Dates: start: 20101220, end: 20101226
  3. LEVOTHYROXINE SODIUM [Concomitant]
     Indication: HYPOTHYROIDISM
     Dosage: 100 UG, DAILY
     Route: 064
     Dates: start: 20100913, end: 20110626
  4. FOLIO [Concomitant]
     Indication: PROPHYLAXIS OF NEURAL TUBE DEFECT
     Dosage: 0.8 MG DAILY
     Route: 064
     Dates: start: 20100919, end: 20110404
  5. UTROGEST [Concomitant]
     Indication: POLYCYSTIC OVARIES
     Dosage: 100 MG, DAILY
     Route: 064
     Dates: start: 20100912, end: 20101114
  6. METFORMIN HCL [Suspect]
     Indication: GLUCOSE TOLERANCE IMPAIRED
     Dosage: UNK
     Route: 064
  7. EBENOL [Concomitant]
     Indication: HYPERSENSITIVITY
     Dosage: UNK
     Route: 064
     Dates: end: 20101117
  8. CETIRIZINE HCL [Concomitant]
     Indication: HYPERSENSITIVITY
     Dosage: 100 MG/D
     Route: 064
     Dates: start: 20100912, end: 20101114
  9. KADEFUNGIN [Concomitant]
     Indication: FUNGAL INFECTION
     Route: 064

REACTIONS (2)
  - TURNER'S SYNDROME [None]
  - HYPOPLASTIC LEFT HEART SYNDROME [None]
